FAERS Safety Report 4628403-0 (Version None)
Quarter: 2005Q2

REPORT INFORMATION
  Report Type: 
  Country: None (occurrence: None)
  Receive Date: 20050406
  Receipt Date: 20041111
  Transmission Date: 20051028
  Serious: Yes (Hospitalization, Other)
  Sender: FDA-Public Use
  Company Number: PHBS2004JP15270

PATIENT
  Age: 76 Year
  Sex: Male
  Weight: 50 kg

DRUGS (3)
  1. GLEEVEC [Suspect]
     Indication: CHRONIC MYELOID LEUKAEMIA
     Dosage: 300 MG/D
     Route: 048
     Dates: start: 20040823
  2. GLEEVEC [Suspect]
     Dosage: 400 MG, QD
     Route: 048
     Dates: start: 20040713, end: 20040808
  3. ASPIRIN [Suspect]
     Dosage: 100 MG, QD
     Route: 048
     Dates: start: 20040803, end: 20040808

REACTIONS (12)
  - BLOOD FIBRINOGEN INCREASED [None]
  - GASTROINTESTINAL HAEMORRHAGE [None]
  - HAEMATOCHEZIA [None]
  - HAEMATOCRIT DECREASED [None]
  - HAEMOGLOBIN DECREASED [None]
  - MELAENA [None]
  - PLATELET AGGREGATION DECREASED [None]
  - PLATELET COUNT DECREASED [None]
  - PLATELET FUNCTION TEST ABNORMAL [None]
  - PROTHROMBIN TIME PROLONGED [None]
  - RECTAL HAEMORRHAGE [None]
  - RED BLOOD CELL COUNT DECREASED [None]
